FAERS Safety Report 5925250-4 (Version None)
Quarter: 2008Q4

REPORT INFORMATION
  Report Type: 
  Country: None (occurrence: None)
  Receive Date: 20081020
  Receipt Date: 20081020
  Transmission Date: 20090506
  Serious: No
  Sender: FDA-Public Use
  Company Number: None

PATIENT
  Age: 40 Year
  Sex: Male
  Weight: 147.419 kg

DRUGS (1)
  1. ABILIFY [Suspect]
     Indication: BIPOLAR DISORDER
     Dosage: STARTED 5MG, THEN 10MG, THEN 1 ONCE A DAY PO
     Route: 048
     Dates: start: 20051001, end: 20070730

REACTIONS (9)
  - HEPATIC STEATOSIS [None]
  - INSULIN RESISTANCE [None]
  - METABOLIC SYNDROME [None]
  - MIDDLE INSOMNIA [None]
  - OBESITY [None]
  - OEDEMA PERIPHERAL [None]
  - SLEEP APNOEA SYNDROME [None]
  - TYPE 2 DIABETES MELLITUS [None]
  - WEIGHT INCREASED [None]
